FAERS Safety Report 7680505-0 (Version None)
Quarter: 2011Q3

REPORT INFORMATION
  Report Type: 
  Country: None (occurrence: None)
  Receive Date: 20110812
  Receipt Date: 20110801
  Transmission Date: 20111222
  Serious: Yes (Other)
  Sender: FDA-Public Use
  Company Number: JP-BAXTER-2011BH025110

PATIENT
  Age: 15 Year
  Sex: Female

DRUGS (4)
  1. IFOSFAMIDE [Suspect]
     Indication: RHABDOMYOSARCOMA
     Route: 065
  2. VINCRISTINE SULFATE [Suspect]
     Indication: RHABDOMYOSARCOMA
     Route: 065
  3. ETOPOSIDE [Suspect]
     Indication: RHABDOMYOSARCOMA
     Route: 065
  4. DACTINOMYCIN [Suspect]
     Indication: RHABDOMYOSARCOMA
     Route: 065

REACTIONS (1)
  - RHABDOMYOLYSIS [None]
